FAERS Safety Report 17142256 (Version 1)
Quarter: 2019Q4

REPORT INFORMATION
  Report Type: Report from Study
  Country: IT (occurrence: IT)
  Receive Date: 20191211
  Receipt Date: 20191211
  Transmission Date: 20200122
  Serious: Yes (Hospitalization)
  Sender: FDA-Public Use
  Company Number: IT-PFIZER INC-2019531913

PATIENT
  Age: 62 Year
  Sex: Female

DRUGS (4)
  1. SALAZOPYRIN EN [Suspect]
     Active Substance: SULFASALAZINE
     Indication: RHEUMATOID ARTHRITIS
     Dosage: 1.5 G, 1X/DAY
     Route: 048
     Dates: start: 20191101, end: 20191110
  2. ADALAT CRONO [Concomitant]
     Active Substance: NIFEDIPINE
  3. NALAPRES [Concomitant]
  4. TORVAST [Concomitant]
     Active Substance: ATORVASTATIN

REACTIONS (4)
  - Transaminases increased [Recovering/Resolving]
  - Drug-induced liver injury [Recovering/Resolving]
  - Blood bilirubin increased [Recovering/Resolving]
  - Rash [Recovering/Resolving]

NARRATIVE: CASE EVENT DATE: 20191110
